FAERS Safety Report 7347088-6 (Version None)
Quarter: 2011Q1

REPORT INFORMATION
  Report Type: 
  Country: None (occurrence: None)
  Receive Date: 20110303
  Receipt Date: 20110120
  Transmission Date: 20110831
  Serious: Yes (Death, Other)
  Sender: FDA-Public Use
  Company Number: US-004566

PATIENT
  Age: 35 Year
  Sex: Female

DRUGS (3)
  1. FOLLISTIM [Concomitant]
  2. BRAVELLE [Suspect]
     Indication: OVULATION INDUCTION
     Dosage: (75 IU)
  3. CLOMID [Concomitant]

REACTIONS (2)
  - ABORTION MISSED [None]
  - CYTOGENETIC ABNORMALITY [None]
